FAERS Safety Report 5776980-9 (Version None)
Quarter: 2008Q2

REPORT INFORMATION
  Report Type: 
  Country: None (occurrence: None)
  Receive Date: 20080618
  Receipt Date: 20070213
  Transmission Date: 20081010
  Serious: Yes (Hospitalization)
  Sender: FDA-Public Use
  Company Number: JP-JNJFOC-20080603758

PATIENT

DRUGS (4)
  1. RISPERDAL [Suspect]
  2. RISPERDAL [Suspect]
     Indication: DRUG USE FOR UNKNOWN INDICATION
  3. ABILIFY [Concomitant]
     Route: 048
  4. SSRI [Concomitant]

REACTIONS (3)
  - AGITATION [None]
  - COMPULSIONS [None]
  - RESTLESSNESS [None]
